FAERS Safety Report 15632362 (Version 5)
Quarter: 2019Q2

REPORT INFORMATION
  Report Type: Report from Study
  Country: CA (occurrence: CA)
  Receive Date: 20181119
  Receipt Date: 20190410
  Transmission Date: 20190711
  Serious: Yes (Hospitalization)
  Sender: FDA-Public Use
  Company Number: CA-EISAI MEDICAL RESEARCH-EC-2017-025414

PATIENT
  Age: 75 Year
  Sex: Male

DRUGS (20)
  1. LENVIMA [Suspect]
     Active Substance: LENVATINIB
     Route: 048
     Dates: start: 2017, end: 201705
  2. LENVIMA [Suspect]
     Active Substance: LENVATINIB
     Route: 048
     Dates: start: 2019, end: 2019
  3. TAMSULOSIN [Concomitant]
     Active Substance: TAMSULOSIN
  4. PERINDOPRIL [Concomitant]
     Active Substance: PERINDOPRIL
  5. RABEPRAZOLE [Concomitant]
     Active Substance: RABEPRAZOLE
  6. LENVIMA [Suspect]
     Active Substance: LENVATINIB
     Indication: THYROID CANCER
     Route: 048
     Dates: start: 20170224, end: 2017
  7. ATENOLOL. [Concomitant]
     Active Substance: ATENOLOL
  8. SYNTHROID [Concomitant]
     Active Substance: LEVOTHYROXINE SODIUM
  9. AMLODIPINE [Concomitant]
     Active Substance: AMLODIPINE BESYLATE
  10. APO-DUTASTERIDE [Concomitant]
     Active Substance: DUTASTERIDE
  11. CARDIZEM [Concomitant]
     Active Substance: DILTIAZEM HYDROCHLORIDE
  12. LENVIMA [Suspect]
     Active Substance: LENVATINIB
     Route: 048
     Dates: start: 20181115, end: 201811
  13. LENVIMA [Suspect]
     Active Substance: LENVATINIB
     Route: 048
     Dates: start: 2019, end: 201903
  14. CANDESARTAN. [Concomitant]
     Active Substance: CANDESARTAN
  15. CALCIUM [Concomitant]
     Active Substance: CALCIUM
  16. LENVIMA [Suspect]
     Active Substance: LENVATINIB
     Route: 048
     Dates: start: 201705, end: 201706
  17. ALLOPURINOL. [Concomitant]
     Active Substance: ALLOPURINOL
  18. CHOLESTYRAMINE. [Concomitant]
     Active Substance: CHOLESTYRAMINE
  19. LENVIMA [Suspect]
     Active Substance: LENVATINIB
     Route: 048
     Dates: start: 20180313, end: 20181112
  20. VITAMIN D2 [Concomitant]
     Active Substance: ERGOCALCIFEROL

REACTIONS (14)
  - Hypotension [Unknown]
  - Oral pain [Not Recovered/Not Resolved]
  - Dehydration [Unknown]
  - Diarrhoea [Not Recovered/Not Resolved]
  - Muscle spasms [Unknown]
  - Blood pressure increased [Recovered/Resolved]
  - Paraesthesia oral [Not Recovered/Not Resolved]
  - Diarrhoea [Unknown]
  - Blood creatinine increased [Recovering/Resolving]
  - Infection [Unknown]
  - Dysphonia [Not Recovered/Not Resolved]
  - Urinary retention [Unknown]
  - Tremor [Recovered/Resolved]
  - Muscle strain [Unknown]

NARRATIVE: CASE EVENT DATE: 2017
